FAERS Safety Report 17650463 (Version 1)
Quarter: 2020Q2

REPORT INFORMATION
  Report Type: Spontaneous
  Country: US (occurrence: US)
  Receive Date: 20200409
  Receipt Date: 20200409
  Transmission Date: 20200713
  Serious: Yes (Life-Threatening)
  Sender: FDA-Public Use
  Company Number: US-PFIZER INC-2020144501

PATIENT
  Sex: Female

DRUGS (3)
  1. BUPIVACAINE HCL [Suspect]
     Active Substance: BUPIVACAINE HYDROCHLORIDE
     Indication: SPINAL ANAESTHESIA
     Dosage: UNK
     Route: 008
  2. FENTANYL CITRATE. [Suspect]
     Active Substance: FENTANYL CITRATE
     Dosage: 2 UG/ML, UNK
     Route: 008
  3. BENZYLPENICILLIN POTASSIUM [Suspect]
     Active Substance: PENICILLIN G POTASSIUM
     Dosage: 5 MILLION IU, UNK
     Route: 042

REACTIONS (6)
  - Product selection error [Unknown]
  - Incorrect route of product administration [Unknown]
  - Respiratory arrest [Recovered/Resolved]
  - Maternal exposure during pregnancy [Unknown]
  - Seizure [Recovered/Resolved]
  - Wrong product administered [Unknown]
